FAERS Safety Report 7348087-0 (Version None)
Quarter: 2011Q1

REPORT INFORMATION
  Report Type: 
  Country: None (occurrence: None)
  Receive Date: 20110311
  Receipt Date: 20110228
  Transmission Date: 20110831
  Serious: Yes (Hospitalization)
  Sender: FDA-Public Use
  Company Number: JP-AMGEN-JPNCT2011013559

PATIENT
  Age: 40 Year
  Sex: Male
  Weight: 86 kg

DRUGS (21)
  1. PANITUMUMAB [Suspect]
     Indication: COLORECTAL CANCER
     Dosage: 6 UNK, Q2WK
     Route: 041
     Dates: start: 20100825, end: 20100825
  2. CORTICOSTEROIDS [Concomitant]
     Indication: PROPHYLAXIS
     Route: 065
  3. MYSER OINTMENT [Concomitant]
     Route: 062
  4. ZYROLIC [Concomitant]
     Route: 048
  5. MINOCYCLINE HCL [Concomitant]
     Route: 048
  6. DECADRON [Concomitant]
     Route: 048
  7. PANITUMUMAB [Suspect]
     Dosage: 6 MG/KG, Q2WK
     Route: 041
     Dates: start: 20101117
  8. IRINOTECAN HYDROCHLORIDE [Suspect]
     Indication: COLORECTAL CANCER
     Dosage: 150 MG/M2, Q2WK
     Route: 041
     Dates: start: 20100825
  9. CALCIUM LEVOFOLINATE [Suspect]
     Indication: COLORECTAL CANCER
     Dosage: 200 MG/M2, Q2WK
     Route: 041
     Dates: start: 20100825
  10. FLUOROURACIL [Suspect]
     Indication: COLORECTAL CANCER
     Dosage: 400 MG/M2, Q2WK
     Route: 040
     Dates: start: 20100825
  11. HIRUDOID SOFT [Concomitant]
     Route: 062
  12. WARFARIN [Concomitant]
     Route: 048
  13. BETAMETHASONE [Concomitant]
     Route: 048
  14. LAC B [Concomitant]
     Route: 048
  15. FLUOROURACIL [Suspect]
     Route: 041
     Dates: start: 20100825
  16. TAKEPRON [Concomitant]
     Route: 048
  17. AZUNOL GARGLE LIQUID [Concomitant]
     Route: 049
  18. EXCEGRAN [Concomitant]
     Route: 048
  19. ANTIHISTAMINES [Concomitant]
     Indication: PROPHYLAXIS
     Route: 065
  20. KINDAVATE OINTMENT [Concomitant]
     Route: 062
  21. GRANISETRON HCL [Concomitant]

REACTIONS (8)
  - COUGH [None]
  - DYSPNOEA [None]
  - DECREASED APPETITE [None]
  - ATELECTASIS [None]
  - DERMATITIS ACNEIFORM [None]
  - MALAISE [None]
  - NEUROPATHY PERIPHERAL [None]
  - ALOPECIA [None]
